FAERS Safety Report 9580330 (Version 1)
Quarter: 2013Q4

REPORT INFORMATION
  Report Type: Spontaneous
  Country: US (occurrence: US)
  Receive Date: 20131002
  Receipt Date: 20131002
  Transmission Date: 20140711
  Serious: Yes (Other)
  Sender: FDA-Public Use
  Company Number: US-BAYER-2013-118543

PATIENT
  Sex: Female

DRUGS (1)
  1. MIRENA [Suspect]
     Dosage: 20 ?G/D, CONT
     Route: 015
     Dates: start: 2012

REACTIONS (4)
  - Cervix haemorrhage uterine [None]
  - Vaginal haemorrhage [Not Recovered/Not Resolved]
  - Cervix inflammation [None]
  - Dyspareunia [None]
